FAERS Safety Report 24245054 (Version 1)
Quarter: 2024Q3

REPORT INFORMATION
  Report Type: Spontaneous
  Country: US (occurrence: US)
  Receive Date: 20240823
  Receipt Date: 20240823
  Transmission Date: 20241017
  Serious: Yes (Other)
  Sender: MALLINCKRODT
  Company Number: US-MALLINCKRODT-MNK202405198

PATIENT
  Age: 68 Year
  Sex: Male

DRUGS (9)
  1. NITRIC OXIDE [Suspect]
     Active Substance: NITRIC OXIDE
     Indication: Cardiogenic shock
     Dosage: UNKNOWN
     Route: 055
  2. NITRIC OXIDE [Suspect]
     Active Substance: NITRIC OXIDE
     Indication: Bronchospasm
  3. FUROSEMIDE [Concomitant]
     Active Substance: FUROSEMIDE
     Dosage: UNKNOWN
  4. DIGOXIN [Concomitant]
     Active Substance: DIGOXIN
     Dosage: UNKNOWN
  5. MILRINONE [Concomitant]
     Active Substance: MILRINONE
     Dosage: UNKNOWN
  6. HEPARIN [Concomitant]
     Active Substance: HEPARIN SODIUM
     Dosage: UNKNOWN
  7. NOREPINEPHRINE [Concomitant]
     Active Substance: NOREPINEPHRINE\NOREPINEPHRINE BITARTRATE
     Dosage: UNKNOWN
  8. VASOPRESSIN [Concomitant]
     Active Substance: VASOPRESSIN
     Dosage: UNKNOWN
  9. OXYGEN [Concomitant]
     Active Substance: OXYGEN
     Dosage: UNKNOWN

REACTIONS (7)
  - Acute kidney injury [Unknown]
  - Oliguria [Unknown]
  - Shock [Recovered/Resolved]
  - Thrombosis [Unknown]
  - Hypervolaemia [Unknown]
  - Product use issue [Unknown]
  - Product use in unapproved indication [Unknown]
